FAERS Safety Report 18114861 (Version 1)
Quarter: 2020Q3

REPORT INFORMATION
  Report Type: Spontaneous
  Country: CN (occurrence: CN)
  Receive Date: 20200805
  Receipt Date: 20200805
  Transmission Date: 20201103
  Serious: Yes (Other)
  Sender: FDA-Public Use
  Company Number: CN-PFIZER INC-2020295161

PATIENT
  Age: 9 Day
  Sex: Female
  Weight: 2 kg

DRUGS (1)
  1. PIPERACILLIN/TAZOBACTAM [Suspect]
     Active Substance: PIPERACILLIN SODIUM\TAZOBACTAM SODIUM
     Indication: INFECTION
     Dosage: UNK
     Dates: start: 20200727

REACTIONS (1)
  - Anaemia neonatal [Unknown]

NARRATIVE: CASE EVENT DATE: 20200727
